FAERS Safety Report 18941961 (Version 1)
Quarter: 2021Q1

REPORT INFORMATION
  Report Type: Spontaneous
  Country: US (occurrence: US)
  Receive Date: 20210225
  Receipt Date: 20210225
  Transmission Date: 20210420
  Serious: Yes (Hospitalization, Other)
  Sender: FDA-Public Use
  Company Number: US-B.I. PHARMACEUTICALS,INC./RIDGEFIELD-2021-BI-084575

PATIENT
  Age: 62 Year
  Sex: Male

DRUGS (3)
  1. LANTUS [Concomitant]
     Active Substance: INSULIN GLARGINE
     Indication: PRODUCT USED FOR UNKNOWN INDICATION
  2. ACTOS [Concomitant]
     Active Substance: PIOGLITAZONE HYDROCHLORIDE
     Indication: PRODUCT USED FOR UNKNOWN INDICATION
  3. TRIJARDY XR [Suspect]
     Active Substance: EMPAGLIFLOZIN\LINAGLIPTIN\METFORMIN HYDROCHLORIDE
     Indication: TYPE 2 DIABETES MELLITUS
     Dosage: 10/5/1000MG PO ONCE DAILY
     Route: 048
     Dates: start: 20210203, end: 20210212

REACTIONS (6)
  - Nausea [Recovered/Resolved]
  - Gastrooesophageal reflux disease [Recovered/Resolved]
  - Euglycaemic diabetic ketoacidosis [Recovered/Resolved]
  - Vomiting [Recovered/Resolved]
  - Dizziness [Recovered/Resolved]
  - Headache [Recovered/Resolved]

NARRATIVE: CASE EVENT DATE: 202102
